FAERS Safety Report 8382266-9 (Version None)
Quarter: 2012Q2

REPORT INFORMATION
  Report Type: 
  Country: None (occurrence: None)
  Receive Date: 20120524
  Receipt Date: 20120519
  Transmission Date: 20120825
  Serious: No
  Sender: FDA-Public Use
  Company Number: US-PFIZER INC-2012121517

PATIENT
  Sex: Female

DRUGS (2)
  1. IBUPROFEN (ADVIL) [Suspect]
     Indication: EAR PAIN
     Dosage: 4 TABLETS AT 3.30AM AND 4 TABLETS ON SAME DAY
     Route: 048
     Dates: start: 20120519
  2. IBUPROFEN (ADVIL) [Suspect]
     Indication: AURICULAR SWELLING
     Dosage: UNK
     Route: 048

REACTIONS (4)
  - INCORRECT DOSE ADMINISTERED [None]
  - OVERDOSE [None]
  - AURICULAR SWELLING [None]
  - EAR PAIN [None]
